FAERS Safety Report 5885785-X (Version None)
Quarter: 2008Q3

REPORT INFORMATION
  Report Type: 
  Country: None (occurrence: None)
  Receive Date: 20080917
  Receipt Date: 20080905
  Transmission Date: 20090109
  Serious: Yes (Hospitalization)
  Sender: FDA-Public Use
  Company Number: GB-RANBAXY-2008RR-17876

PATIENT

DRUGS (9)
  1. ZOCOR 5MG, TABLETTEN [Suspect]
     Indication: HYPERCHOLESTEROLAEMIA
     Dosage: 10 MG, QD
     Route: 048
     Dates: start: 20000201, end: 20031001
  2. ZOCOR 5MG, TABLETTEN [Suspect]
     Dosage: 20 MG, QD
     Route: 048
     Dates: start: 20031001, end: 20041201
  3. ZOCOR 5MG, TABLETTEN [Suspect]
     Dosage: 40 MG, QD
     Route: 048
     Dates: start: 20041201, end: 20050901
  4. ZOCOR 5MG, TABLETTEN [Suspect]
     Dosage: UNK
     Dates: start: 19890101, end: 20000201
  5. ASPIRIN [Concomitant]
     Indication: PROPHYLAXIS
     Dosage: 75 MG, QD
     Route: 048
     Dates: start: 20000101
  6. ATENOLOL [Concomitant]
     Indication: HYPERTENSION
     Dosage: 100 MG, QD
     Route: 048
     Dates: start: 20010531
  7. LEVOTHYROXINE SODIUM [Concomitant]
     Indication: HYPOTHYROIDISM
     Dosage: 75 MG, QD
     Route: 048
     Dates: start: 19940101
  8. PERSANTINE [Concomitant]
     Indication: CEREBROVASCULAR ACCIDENT PROPHYLAXIS
     Dosage: 200 MG, QD
     Route: 048
     Dates: start: 20010523
  9. ATORVASTATIN CALCIUM [Concomitant]
     Dosage: 10 MG, UNK

REACTIONS (2)
  - BURNING SENSATION [None]
  - CEREBROVASCULAR ACCIDENT [None]
